FAERS Safety Report 9159861 (Version 1)
Quarter: 2013Q1

REPORT INFORMATION
  Report Type: Spontaneous
  Country: DE (occurrence: DE)
  Receive Date: 20130313
  Receipt Date: 20130313
  Transmission Date: 20140127
  Serious: Yes (Other)
  Sender: FDA-Public Use
  Company Number: DE-BAYER-2013-031092

PATIENT
  Age: 71 Year
  Sex: Female

DRUGS (4)
  1. ACETYLSALICYLIC ACID({=100 MG) [Suspect]
     Indication: CORONARY ARTERY DISEASE
     Dosage: UNK
  2. PERINDOPRIL [Interacting]
     Dosage: UNK
  3. BISOPROLOL [BISOPROLOL] [Concomitant]
     Indication: HYPERTENSION
     Dosage: UNK
  4. BISOPROLOL [BISOPROLOL] [Concomitant]
     Indication: CORONARY ARTERY DISEASE

REACTIONS (2)
  - Angioedema [Recovered/Resolved]
  - Cough [Recovered/Resolved]
